FAERS Safety Report 20399580 (Version 2)
Quarter: 2022Q1

REPORT INFORMATION
  Report Type: Spontaneous
  Country: US (occurrence: US)
  Receive Date: 20220131
  Receipt Date: 20220201
  Transmission Date: 20220423
  Serious: No
  Sender: FDA-Public Use
  Company Number: US-ABBVIE-21K-163-4071039-00

PATIENT
  Age: 45 Year
  Sex: Female
  Weight: 66.284 kg

DRUGS (14)
  1. HUMIRA [Suspect]
     Active Substance: ADALIMUMAB
     Indication: Rheumatoid arthritis
     Route: 058
  2. HUMIRA [Suspect]
     Active Substance: ADALIMUMAB
     Route: 058
  3. AMITRIPTYLINE [Concomitant]
     Active Substance: AMITRIPTYLINE
     Indication: Depression
  4. SENNA [Concomitant]
     Active Substance: SENNA LEAF\SENNOSIDES\SENNOSIDES A AND B
     Indication: Gastric disorder
  5. PROPRANOLOL [Concomitant]
     Active Substance: PROPRANOLOL HYDROCHLORIDE
     Indication: Heart rate
  6. PROPRANOLOL [Concomitant]
     Active Substance: PROPRANOLOL HYDROCHLORIDE
     Indication: Hyperthyroidism
  7. GABAPENTIN [Concomitant]
     Active Substance: GABAPENTIN
     Indication: Sciatica
  8. IMITREX [Concomitant]
     Active Substance: SUMATRIPTAN SUCCINATE
     Indication: Migraine
  9. ALBUTEROL [Concomitant]
     Active Substance: ALBUTEROL
     Indication: Asthma
  10. LATANOPROST [Concomitant]
     Active Substance: LATANOPROST
     Indication: Glaucoma
  11. ZYRTEC [Concomitant]
     Active Substance: CETIRIZINE HYDROCHLORIDE
     Indication: Hypersensitivity
  12. COLACE [Concomitant]
     Active Substance: DOCUSATE SODIUM
     Indication: Gastric disorder
  13. WARFARIN [Concomitant]
     Active Substance: WARFARIN
     Indication: Cardiac valve disease
  14. ZONEGRAN [Concomitant]
     Active Substance: ZONISAMIDE
     Indication: Migraine

REACTIONS (2)
  - Injection site pain [Not Recovered/Not Resolved]
  - Device issue [Recovered/Resolved]

NARRATIVE: CASE EVENT DATE: 20210905
